FAERS Safety Report 10890326 (Version 1)
Quarter: 2015Q1

REPORT INFORMATION
  Report Type: Spontaneous
  Country: US (occurrence: US)
  Receive Date: 20150305
  Receipt Date: 20150305
  Transmission Date: 20150721
  Serious: Yes (Other)
  Sender: FDA-Public Use
  Company Number: US-AMGEN-USASP2015019597

PATIENT
  Age: 52 Year
  Sex: Female

DRUGS (1)
  1. ENBREL [Suspect]
     Active Substance: ETANERCEPT
     Indication: RHEUMATOID ARTHRITIS
     Dosage: 50 MG, QWK
     Route: 065
     Dates: start: 20100920

REACTIONS (7)
  - Arthralgia [Not Recovered/Not Resolved]
  - Bone disorder [Recovered/Resolved]
  - Nodule [Recovered/Resolved]
  - Impaired healing [Recovered/Resolved]
  - Weight decreased [Recovered/Resolved]
  - Device dislocation [Recovered/Resolved]
  - Foot deformity [Recovered/Resolved]
